FAERS Safety Report 6224316-1 (Version None)
Quarter: 2009Q2

REPORT INFORMATION
  Report Type: 
  Country: None (occurrence: None)
  Receive Date: 20090612
  Receipt Date: 20090316
  Transmission Date: 20091009
  Serious: No
  Sender: FDA-Public Use
  Company Number: US-ABBOTT-09P-163-0562797-00

PATIENT
  Sex: Female

DRUGS (1)
  1. HUMIRA [Suspect]
     Indication: CROHN'S DISEASE
     Dosage: DAY 1
     Dates: start: 20090227

REACTIONS (5)
  - INFLAMMATION [None]
  - NASOPHARYNGITIS [None]
  - PAIN [None]
  - PHARYNGITIS STREPTOCOCCAL [None]
  - PYREXIA [None]
